FAERS Safety Report 20148455 (Version 1)
Quarter: 2021Q4

REPORT INFORMATION
  Report Type: Spontaneous
  Country: US (occurrence: US)
  Receive Date: 20211205
  Receipt Date: 20211205
  Transmission Date: 20220303
  Serious: Yes (Other)
  Sender: FDA-Public Use
  Company Number: US-STRIDES ARCOLAB LIMITED-2021SP030352

PATIENT
  Sex: Female
  Weight: 68.039 kg

DRUGS (4)
  1. HYDROCORTISONE [Suspect]
     Active Substance: HYDROCORTISONE
     Indication: Adrenal disorder
     Dosage: 1 TABLET, TID
     Route: 048
     Dates: start: 20211015
  2. HYDROCORTISONE [Suspect]
     Active Substance: HYDROCORTISONE
     Indication: Glucocorticoid deficiency
  3. T3/T4 SUPPORT [Concomitant]
     Indication: Hypothyroidism
     Dosage: UNK, ONCE IN MORNING
     Route: 048
  4. PROGESTERONE [Concomitant]
     Active Substance: PROGESTERONE
     Indication: Progesterone decreased
     Dosage: UNK, SINCE EIGHT YEARS
     Route: 065

REACTIONS (7)
  - Mast cell activation syndrome [Unknown]
  - Condition aggravated [Unknown]
  - Mental fatigue [Unknown]
  - Fatigue [Unknown]
  - Lacrimation increased [Unknown]
  - Allergic reaction to excipient [Unknown]
  - Incorrect dose administered [Unknown]
